FAERS Safety Report 20319944 (Version 1)
Quarter: 2022Q1

REPORT INFORMATION
  Report Type: Spontaneous
  Country: IE (occurrence: None)
  Receive Date: 20220111
  Receipt Date: 20220111
  Transmission Date: 20220424
  Serious: Yes (Death)
  Sender: FDA-Public Use
  Company Number: IE-ROCHE-2996434

PATIENT
  Sex: Female

DRUGS (10)
  1. ATEZOLIZUMAB [Suspect]
     Active Substance: ATEZOLIZUMAB
     Indication: Product used for unknown indication
     Route: 041
  2. BEVACIZUMAB [Suspect]
     Active Substance: BEVACIZUMAB
     Indication: Product used for unknown indication
     Route: 065
  3. AFATINIB [Concomitant]
     Active Substance: AFATINIB
     Dates: start: 20170824, end: 20200628
  4. CARBOPLATIN [Concomitant]
     Active Substance: CARBOPLATIN
     Dates: start: 20190719, end: 20191119
  5. OSIMERTINIB [Concomitant]
     Active Substance: OSIMERTINIB
     Dates: start: 20200703, end: 20200929
  6. TRAMETINIB [Concomitant]
     Active Substance: TRAMETINIB
     Dates: start: 20200703, end: 20200929
  7. DABRAFENIB [Concomitant]
     Active Substance: DABRAFENIB
     Dates: start: 20201027, end: 20210226
  8. TAXOL [Concomitant]
     Active Substance: PACLITAXEL
     Dates: start: 20210329
  9. PEMETREXED [Concomitant]
     Active Substance: PEMETREXED
     Dates: start: 20190719, end: 20191119
  10. PEMETREXED [Concomitant]
     Active Substance: PEMETREXED
     Dates: start: 20191120, end: 20200928

REACTIONS (1)
  - Pneumonia [Fatal]
